FAERS Safety Report 16777635 (Version 1)
Quarter: 2019Q3

REPORT INFORMATION
  Report Type: Report from Study
  Country: CN (occurrence: CN)
  Receive Date: 20190905
  Receipt Date: 20190905
  Transmission Date: 20191005
  Serious: Yes (Hospitalization)
  Sender: FDA-Public Use
  Company Number: CN-ELI_LILLY_AND_COMPANY-CN201908013651

PATIENT
  Age: 33 Year
  Sex: Female
  Weight: 50 kg

DRUGS (2)
  1. INSULIN, LISPRO [Suspect]
     Active Substance: INSULIN LISPRO
     Indication: DIABETES MELLITUS
     Dosage: 5 U, BID(MORNING AND NIGHT)
     Route: 058
     Dates: start: 201808
  2. INSULIN, LISPRO [Suspect]
     Active Substance: INSULIN LISPRO
     Dosage: 10 U, TID(MORNING, NOON AND NIGHT)
     Route: 058
     Dates: start: 201908

REACTIONS (3)
  - Nasopharyngitis [Unknown]
  - Swelling [Recovering/Resolving]
  - Immune system disorder [Unknown]
